FAERS Safety Report 6873652-4 (Version None)
Quarter: 2010Q3

REPORT INFORMATION
  Report Type: 
  Country: None (occurrence: None)
  Receive Date: 20100723
  Receipt Date: 20090402
  Transmission Date: 20110219
  Serious: No
  Sender: FDA-Public Use
  Company Number: US-PFIZER INC-2009167304

PATIENT
  Sex: Female
  Weight: 59.864 kg

DRUGS (3)
  1. CHANTIX [Suspect]
     Indication: SMOKING CESSATION THERAPY
     Route: 048
     Dates: start: 20090203
  2. DRUG, UNSPECIFIED [Concomitant]
  3. TIMOLOL MALEATE [Concomitant]

REACTIONS (2)
  - ERYTHEMA [None]
  - FEELING HOT [None]
